FAERS Safety Report 14419995 (Version 1)
Quarter: 2018Q1

REPORT INFORMATION
  Report Type: Spontaneous
  Country: JP (occurrence: JP)
  Receive Date: 20180122
  Receipt Date: 20180122
  Transmission Date: 20180509
  Serious: Yes (Other)
  Sender: FDA-Public Use
  Company Number: JP-PFIZER INC-2018025222

PATIENT
  Age: 77 Year
  Sex: Female

DRUGS (1)
  1. LYRICA [Suspect]
     Active Substance: PREGABALIN
     Dosage: 225 MG, DAILY (75 MG IN THE MORNING AND 150 MG IN THE EVENING
     Route: 048

REACTIONS (4)
  - Dysstasia [Unknown]
  - Dementia [Unknown]
  - Somnolence [Unknown]
  - Dysarthria [Unknown]
